FAERS Safety Report 6143038-9 (Version None)
Quarter: 2009Q2

REPORT INFORMATION
  Report Type: 
  Country: None (occurrence: None)
  Receive Date: 20090403
  Receipt Date: 20090330
  Transmission Date: 20091009
  Serious: Yes (Death)
  Sender: FDA-Public Use
  Company Number: AU-BAXTER-2009BH004296

PATIENT
  Age: 55 Year
  Sex: Male

DRUGS (1)
  1. RECOMBINATE [Suspect]
     Indication: HAEMOPHILIA
     Route: 065

REACTIONS (1)
  - DEATH [None]
